FAERS Safety Report 7252954-6 (Version None)
Quarter: 2011Q1

REPORT INFORMATION
  Report Type: 
  Country: None (occurrence: None)
  Receive Date: 20110129
  Receipt Date: 20100316
  Transmission Date: 20110831
  Serious: No
  Sender: FDA-Public Use
  Company Number: US-ABBOTT-10P-163-0633941-00

PATIENT
  Sex: Female
  Weight: 108.96 kg

DRUGS (8)
  1. ACTOS [Concomitant]
     Indication: DIABETES MELLITUS
     Route: 048
  2. HUMIRA [Suspect]
     Indication: PSORIATIC ARTHROPATHY
  3. METHOTREXATE [Concomitant]
     Indication: PSORIATIC ARTHROPATHY
  4. HUMIRA [Suspect]
     Indication: PSORIASIS
     Route: 058
  5. METHOTREXATE [Concomitant]
     Indication: PSORIASIS
     Route: 048
  6. GLIPIZIDE [Concomitant]
     Indication: DIABETES MELLITUS
     Route: 048
  7. AMLODIPINE [Concomitant]
     Indication: HYPERTENSION
     Route: 048
  8. AMLODIPINE [Concomitant]
     Indication: PALPITATIONS

REACTIONS (6)
  - INTERVERTEBRAL DISC PROTRUSION [None]
  - INJECTION SITE PAIN [None]
  - PAIN IN EXTREMITY [None]
  - BACK PAIN [None]
  - FATIGUE [None]
  - INJECTION SITE HAEMATOMA [None]
